FAERS Safety Report 6068430-2 (Version None)
Quarter: 2009Q1

REPORT INFORMATION
  Report Type: 
  Country: None (occurrence: None)
  Receive Date: 20090203
  Receipt Date: 20090127
  Transmission Date: 20090719
  Serious: Yes (Other)
  Sender: FDA-Public Use
  Company Number: 2009SP001941

PATIENT

DRUGS (1)
  1. PEGATRON   (PEGINTERFERON ALFA-2B W/RIBAVIRIN) (PEGYLATED INTERFERON A [Suspect]
     Indication: HEPATITIS C
     Dates: end: 20080724

REACTIONS (1)
  - SMALL CELL LUNG CANCER STAGE UNSPECIFIED [None]
